FAERS Safety Report 6941037-8 (Version None)
Quarter: 2010Q3

REPORT INFORMATION
  Report Type: 
  Country: None (occurrence: None)
  Receive Date: 20100825
  Receipt Date: 20100817
  Transmission Date: 20110219
  Serious: Yes (Other)
  Sender: FDA-Public Use
  Company Number: B0671470A

PATIENT
  Sex: Female
  Weight: 45 kg

DRUGS (2)
  1. PAROXETINE HCL [Suspect]
     Indication: PRODUCT USED FOR UNKNOWN INDICATION
     Dates: start: 20090201, end: 20090301
  2. ZYPREXA [Concomitant]

REACTIONS (1)
  - AGGRESSION [None]
